FAERS Safety Report 14936487 (Version 1)
Quarter: 2018Q2

REPORT INFORMATION
  Report Type: Spontaneous
  Country: FR (occurrence: FR)
  Receive Date: 20180525
  Receipt Date: 20180525
  Transmission Date: 20180711
  Serious: Yes (Other)
  Sender: FDA-Public Use
  Company Number: FR-MERCK KGAA-2048421

PATIENT
  Age: 53 Year
  Sex: Female

DRUGS (1)
  1. NOVOTHYROX [Suspect]
     Active Substance: LEVOTHYROXINE SODIUM
     Indication: PRODUCT USED FOR UNKNOWN INDICATION
     Dates: start: 201704, end: 201709

REACTIONS (12)
  - Fatigue [None]
  - Colitis [None]
  - Emotional distress [None]
  - Blood alkaline phosphatase increased [Not Recovered/Not Resolved]
  - Pain [Recovering/Resolving]
  - Nervousness [None]
  - Gamma-glutamyltransferase increased [Not Recovered/Not Resolved]
  - Alopecia [Recovered/Resolved]
  - Limb discomfort [None]
  - Gastrointestinal disorder [Recovering/Resolving]
  - Diarrhoea [None]
  - Insomnia [None]

NARRATIVE: CASE EVENT DATE: 20170621
